FAERS Safety Report 25380735 (Version 1)
Quarter: 2025Q2

REPORT INFORMATION
  Report Type: Spontaneous
  Country: BG (occurrence: BG)
  Receive Date: 20250530
  Receipt Date: 20250530
  Transmission Date: 20250716
  Serious: Yes (Hospitalization)
  Sender: BOEHRINGER INGELHEIM
  Company Number: BG-BoehringerIngelheim-2025-BI-073593

PATIENT
  Age: 68 Year

DRUGS (3)
  1. OFEV [Suspect]
     Active Substance: NINTEDANIB
     Indication: Pulmonary fibrosis
     Dates: start: 20250228
  2. OFEV [Suspect]
     Active Substance: NINTEDANIB
  3. AMLODIPINE\INDAPAMIDE\PERINDOPRIL [Concomitant]
     Active Substance: AMLODIPINE\INDAPAMIDE\PERINDOPRIL
     Indication: Product used for unknown indication

REACTIONS (2)
  - Tendon operation [Unknown]
  - Blood pressure inadequately controlled [Unknown]
